FAERS Safety Report 8512909-8 (Version None)
Quarter: 2012Q3

REPORT INFORMATION
  Report Type: 
  Country: None (occurrence: None)
  Receive Date: 20120716
  Receipt Date: 20120711
  Transmission Date: 20120928
  Serious: Yes (Disabling, Other)
  Sender: FDA-Public Use
  Company Number: PHHY2012GB059512

PATIENT
  Age: 43 Year
  Sex: Male
  Weight: 93 kg

DRUGS (6)
  1. OMEPRAZOLE [Suspect]
     Route: 048
  2. OMEPRAZOLE [Suspect]
     Route: 048
  3. OMEPRAZOLE [Suspect]
     Indication: DYSPEPSIA
     Dosage: 20 MG
     Route: 048
     Dates: end: 20120630
  4. OMEPRAZOLE [Suspect]
     Route: 048
  5. OMEPRAZOLE [Suspect]
     Route: 048
  6. RENNIE [Concomitant]
     Indication: DYSPEPSIA

REACTIONS (5)
  - ASTHMA [None]
  - COUGH [None]
  - GASTROOESOPHAGEAL REFLUX DISEASE [None]
  - SLEEP APNOEA SYNDROME [None]
  - VOMITING [None]
